FAERS Safety Report 11512550 (Version 1)
Quarter: 2015Q3

REPORT INFORMATION
  Report Type: Report from Study
  Country: US (occurrence: US)
  Receive Date: 20150916
  Receipt Date: 20150916
  Transmission Date: 20151125
  Serious: Yes (Hospitalization)
  Sender: FDA-Public Use
  Company Number: US-AEGERION PHARMACEUTICAL INC.-AEGR002031

PATIENT

DRUGS (2)
  1. METRELEPTIN [Suspect]
     Active Substance: METRELEPTIN
     Indication: DIABETES MELLITUS
     Dosage: 42 UNITS, BID
     Route: 058
  2. METRELEPTIN [Suspect]
     Active Substance: METRELEPTIN
     Indication: PARTIAL LIPODYSTROPHY
     Dosage: UNK
     Route: 058
     Dates: start: 2007

REACTIONS (4)
  - Syncope [Unknown]
  - Coronary artery disease [Unknown]
  - Ventricular tachycardia [Unknown]
  - Ejection fraction decreased [Unknown]

NARRATIVE: CASE EVENT DATE: 20150503
